FAERS Safety Report 6902921-4 (Version None)
Quarter: 2010Q3

REPORT INFORMATION
  Report Type: 
  Country: None (occurrence: None)
  Receive Date: 20100803
  Receipt Date: 20080611
  Transmission Date: 20110219
  Serious: No
  Sender: FDA-Public Use
  Company Number: US-PFIZER INC-2008050265

PATIENT
  Sex: Female
  Weight: 88.5 kg

DRUGS (16)
  1. LYRICA [Suspect]
     Indication: FIBROMYALGIA
     Dates: start: 20080608
  2. LYRICA [Suspect]
     Indication: NEUROPATHY PERIPHERAL
  3. PREMARIN [Concomitant]
  4. SYNTHROID [Concomitant]
  5. NIASPAN [Concomitant]
  6. NEXIUM [Concomitant]
  7. LITHIUM [Concomitant]
  8. ABILIFY [Concomitant]
  9. KLOR-CON [Concomitant]
  10. CRESTOR [Concomitant]
  11. TRICOR [Concomitant]
  12. DICLOFENAC [Concomitant]
  13. METFORMIN HCL [Concomitant]
  14. AVANDIA [Concomitant]
  15. GLIMEPIRIDE [Concomitant]
  16. CLONAZEPAM [Concomitant]

REACTIONS (2)
  - FEELING DRUNK [None]
  - INSOMNIA [None]
